FAERS Safety Report 23328182 (Version 1)
Quarter: 2023Q4

REPORT INFORMATION
  Report Type: Spontaneous
  Country: US (occurrence: US)
  Receive Date: 20231221
  Receipt Date: 20231221
  Transmission Date: 20240109
  Serious: No
  Sender: FDA-Public Use
  Company Number: US-009507513-2312USA004756

PATIENT
  Age: 67 Year
  Sex: Male

DRUGS (2)
  1. CUBICIN [Suspect]
     Active Substance: DAPTOMYCIN
     Indication: Septic shock
     Dosage: 8 MG/KG/DAY
  2. CUBICIN [Suspect]
     Active Substance: DAPTOMYCIN
     Indication: Enterococcal infection
     Dosage: 12 MG/KG/DAY

REACTIONS (1)
  - Product use in unapproved indication [Unknown]
